FAERS Safety Report 4404499-6 (Version None)
Quarter: 2004Q3

REPORT INFORMATION
  Report Type: 
  Country: None (occurrence: None)
  Receive Date: 20040720
  Receipt Date: 20040706
  Transmission Date: 20050211
  Serious: Yes (Death, Hospitalization)
  Sender: FDA-Public Use
  Company Number: USA-2004-0015867

PATIENT
  Age: 45 Year
  Sex: Female

DRUGS (9)
  1. MS CONTIN [Suspect]
     Indication: PAIN
     Dosage: 30 MG, BID, ORAL
     Route: 048
  2. DURAGESIC [Suspect]
     Indication: PAIN
     Dosage: 150 MCG/HR, 3/WEEK, TRANSDERMAL
     Route: 062
     Dates: start: 20010101, end: 20010301
  3. DESYREL [Concomitant]
  4. PREVACID [Concomitant]
  5. NEURONTIN [Concomitant]
  6. DILANTIN [Concomitant]
  7. PROZAC [Concomitant]
  8. GLUCOPHAGE [Concomitant]
  9. KLONOPIN [Concomitant]

REACTIONS (3)
  - CARDIAC FAILURE CONGESTIVE [None]
  - DIABETIC NEUROPATHY [None]
  - PAIN EXACERBATED [None]
